FAERS Safety Report 5648119-1 (Version None)
Quarter: 2008Q1

REPORT INFORMATION
  Report Type: 
  Country: None (occurrence: None)
  Receive Date: 20080229
  Receipt Date: 20080214
  Transmission Date: 20080703
  Serious: Yes (Other)
  Sender: FDA-Public Use
  Company Number: 2008-01427

PATIENT
  Age: 45 Year
  Sex: Female

DRUGS (2)
  1. FIORICET [Suspect]
     Indication: MIGRAINE
     Dosage: (DENIED OVERDOSE), ORAL
     Route: 048
     Dates: start: 20010101
  2. UNSPECIFIED ANTIBIOTIC [Concomitant]

REACTIONS (10)
  - CONFUSIONAL STATE [None]
  - DISTURBANCE IN ATTENTION [None]
  - DRUG SCREEN POSITIVE [None]
  - DYSARTHRIA [None]
  - EMOTIONAL DISORDER [None]
  - FEELING DRUNK [None]
  - MALAISE [None]
  - NECK INJURY [None]
  - ROAD TRAFFIC ACCIDENT [None]
  - WHIPLASH INJURY [None]
